FAERS Safety Report 8599205-8 (Version None)
Quarter: 2012Q3

REPORT INFORMATION
  Report Type: 
  Country: None (occurrence: None)
  Receive Date: 20120816
  Receipt Date: 20110825
  Transmission Date: 20120928
  Serious: No
  Sender: FDA-Public Use
  Company Number: US-AMGEN-USASP2011043614

PATIENT
  Sex: Male

DRUGS (1)
  1. NEUPOGEN [Suspect]
     Indication: MYELODYSPLASTIC SYNDROME
     Dosage: 480 MUG, QWK
     Dates: start: 20110501

REACTIONS (3)
  - BODY TEMPERATURE DECREASED [None]
  - ORAL FUNGAL INFECTION [None]
  - DRUG INEFFECTIVE [None]
